FAERS Safety Report 21986264 (Version 2)
Quarter: 2023Q2

REPORT INFORMATION
  Report Type: Spontaneous
  Country: ES (occurrence: ES)
  Receive Date: 20230213
  Receipt Date: 20230531
  Transmission Date: 20230722
  Serious: Yes (Other)
  Sender: FDA-Public Use
  Company Number: None

PATIENT
  Age: 52 Year
  Sex: Male

DRUGS (4)
  1. IRINOTECAN HYDROCHLORIDE [Suspect]
     Active Substance: IRINOTECAN HYDROCHLORIDE
     Indication: Colorectal cancer
     Dosage: 252 MG, CYCLIC [252 MILLIGRAMS (180MG/M2)]
     Route: 042
     Dates: start: 20221017
  2. IRINOTECAN HYDROCHLORIDE [Suspect]
     Active Substance: IRINOTECAN HYDROCHLORIDE
     Dosage: 214.2 MG, CYCLIC [REDUCTION TO 85% OF TOTAL 214.2 MILLIGRAMS (153 MG/M2)]
     Route: 042
     Dates: start: 20221031, end: 20230113
  3. FLUOROURACIL [Suspect]
     Active Substance: FLUOROURACIL
     Indication: Colorectal cancer
     Dosage: 476 MG, CYCLIC [476 MILLIGRAMS (340MG/M2) REDUCED TO 85% OF TOTAL]
     Route: 042
     Dates: start: 20221031
  4. VECTIBIX [Suspect]
     Active Substance: PANITUMUMAB
     Indication: Colorectal cancer
     Dosage: 288 MG, CYCLIC [288 MILLIGRAMS (6MG/KG)]
     Route: 042
     Dates: start: 20221017, end: 20230113

REACTIONS (3)
  - Skin fissures [Recovered/Resolved]
  - Palmar-plantar erythrodysaesthesia syndrome [Recovered/Resolved]
  - Dermatitis acneiform [Recovered/Resolved]

NARRATIVE: CASE EVENT DATE: 20221101
